FAERS Safety Report 5367087-3 (Version None)
Quarter: 2007Q2

REPORT INFORMATION
  Report Type: 
  Country: None (occurrence: None)
  Receive Date: 20070622
  Receipt Date: 20070615
  Transmission Date: 20071010
  Serious: Yes (Other)
  Sender: FDA-Public Use
  Company Number: US-SANOFI-SYNTHELABO-A03200703817

PATIENT
  Sex: Male

DRUGS (4)
  1. AMBIEN [Suspect]
     Route: 048
     Dates: start: 20070301, end: 20070501
  2. LEXAPRO [Concomitant]
     Dosage: UNK
     Route: 065
  3. TOPAMAX [Concomitant]
     Dosage: UNK
     Route: 065
  4. SEROQUEL [Concomitant]
     Dosage: UNK
     Route: 065

REACTIONS (5)
  - IMPAIRED DRIVING ABILITY [None]
  - LIBIDO INCREASED [None]
  - POLYURIA [None]
  - PREMATURE EJACULATION [None]
  - SLEEP WALKING [None]
